FAERS Safety Report 17704733 (Version 1)
Quarter: 2020Q2

REPORT INFORMATION
  Report Type: Spontaneous
  Country: US (occurrence: US)
  Receive Date: 20200424
  Receipt Date: 20200424
  Transmission Date: 20200714
  Serious: No
  Sender: FDA-Public Use
  Company Number: US-SA-2020SA104340

PATIENT
  Sex: Male

DRUGS (2)
  1. MELOXICAM. [Concomitant]
     Active Substance: MELOXICAM
  2. DUPIXENT [Suspect]
     Active Substance: DUPILUMAB
     Indication: ASTHMA
     Dosage: 300 MG, QOW
     Route: 058

REACTIONS (4)
  - Erythema [Unknown]
  - Throat tightness [Unknown]
  - Chest discomfort [Unknown]
  - Dyspnoea [Unknown]
